FAERS Safety Report 14610472 (Version 4)
Quarter: 2018Q2

REPORT INFORMATION
  Report Type: Spontaneous
  Country: US (occurrence: US)
  Receive Date: 20180307
  Receipt Date: 20180510
  Transmission Date: 20180711
  Serious: Yes (Death)
  Sender: FDA-Public Use
  Company Number: US-JNJFOC-20180225047

PATIENT
  Sex: Male

DRUGS (4)
  1. ZYTIGA [Suspect]
     Active Substance: ABIRATERONE ACETATE
     Indication: PROSTATE CANCER STAGE IV
     Route: 048
     Dates: start: 201601
  2. MORPHINE [Concomitant]
     Active Substance: MORPHINE
     Route: 065
     Dates: end: 201804
  3. LYRICA [Concomitant]
     Active Substance: PREGABALIN
     Route: 065
     Dates: end: 201804
  4. FENTANYL. [Concomitant]
     Active Substance: FENTANYL
     Indication: PAIN
     Route: 065
     Dates: end: 201804

REACTIONS (3)
  - Drug diversion [Unknown]
  - Product counterfeit [Unknown]
  - Death [Fatal]
